FAERS Safety Report 20378078 (Version 1)
Quarter: 2022Q1

REPORT INFORMATION
  Report Type: Spontaneous
  Country: US (occurrence: None)
  Receive Date: 20220125
  Receipt Date: 20220125
  Transmission Date: 20220423
  Serious: Yes (Death)
  Sender: FDA-Public Use
  Company Number: None

PATIENT
  Sex: Male

DRUGS (2)
  1. TESTOPEL [Suspect]
     Active Substance: TESTOSTERONE
     Indication: Testicular failure
     Dosage: FREQUENCY : AS DIRECTED;?OTHER ROUTE : IMPLANT;?
     Route: 050
     Dates: start: 20210917
  2. DEVICE [Suspect]
     Active Substance: DEVICE

REACTIONS (1)
  - Death [None]
